FAERS Safety Report 9189371 (Version 1)
Quarter: 2013Q1

REPORT INFORMATION
  Report Type: Spontaneous
  Country: US (occurrence: US)
  Receive Date: 20130326
  Receipt Date: 20130326
  Transmission Date: 20140127
  Serious: Yes (Other)
  Sender: FDA-Public Use
  Company Number: PHEH2013US006772

PATIENT
  Sex: Male

DRUGS (1)
  1. FANAPT [Suspect]
     Dosage: 1.2 MG, BID
     Route: 048

REACTIONS (2)
  - Swollen tongue [Recovered/Resolved]
  - Hypersensitivity [Unknown]
